FAERS Safety Report 7800943-2 (Version None)
Quarter: 2011Q4

REPORT INFORMATION
  Report Type: 
  Country: None (occurrence: None)
  Receive Date: 20111006
  Receipt Date: 20110405
  Transmission Date: 20120403
  Serious: No
  Sender: FDA-Public Use
  Company Number: US-BAYER-2011-029793

PATIENT
  Sex: Male

DRUGS (1)
  1. CIPROFLOXACIN [Suspect]
     Dosage: 500 MG, BID
     Route: 048
     Dates: start: 20110405

REACTIONS (1)
  - NO ADVERSE EVENT [None]
